FAERS Safety Report 6999340-1 (Version None)
Quarter: 2010Q3

REPORT INFORMATION
  Report Type: 
  Country: None (occurrence: None)
  Receive Date: 20100920
  Receipt Date: 20100330
  Transmission Date: 20110219
  Serious: Yes (Other)
  Sender: FDA-Public Use
  Company Number: US-ASTRAZENECA-2006UW04559

PATIENT
  Age: 723 Month
  Sex: Male
  Weight: 93 kg

DRUGS (11)
  1. SEROQUEL [Suspect]
     Indication: PARANOIA
     Dosage: 200-300 MG B I D ,600 MG AT NIGHT
     Route: 048
     Dates: start: 20010809
  2. SEROQUEL [Suspect]
     Indication: DELUSION
     Dosage: 200-300 MG B I D ,600 MG AT NIGHT
     Route: 048
     Dates: start: 20010809
  3. ZYPREXA [Suspect]
     Dates: start: 19980201, end: 20020901
  4. HALDOL [Concomitant]
  5. RISPERDAL [Concomitant]
  6. SINGULAIR [Concomitant]
     Dosage: 10 QD
  7. ACTOS [Concomitant]
     Dosage: 15 QD
  8. LIPITOR [Concomitant]
     Dosage: 10 MG QD
     Dates: start: 20000101
  9. ASPIRIN [Concomitant]
  10. DOCUSATE [Concomitant]
  11. PRINIVIL [Concomitant]

REACTIONS (3)
  - DIABETES MELLITUS [None]
  - INJURY [None]
  - PANCREATITIS [None]
